FAERS Safety Report 5298889-X (Version None)
Quarter: 2007Q2

REPORT INFORMATION
  Report Type: 
  Country: None (occurrence: None)
  Receive Date: 20070417
  Receipt Date: 20070406
  Transmission Date: 20071010
  Serious: Yes (Hospitalization)
  Sender: FDA-Public Use
  Company Number: US-AMGEN-US214674

PATIENT
  Sex: Male
  Weight: 69.5 kg

DRUGS (9)
  1. PANITUMUMAB [Suspect]
     Indication: COLORECTAL CANCER
     Route: 042
     Dates: start: 20070306, end: 20070306
  2. PANITUMUMAB [Suspect]
     Route: 042
     Dates: start: 20070402
  3. IRINOTECAN HCL [Suspect]
     Route: 042
     Dates: start: 20070306, end: 20070306
  4. IRINOTECAN HCL [Suspect]
     Route: 042
     Dates: start: 20070402
  5. DECADRON [Concomitant]
     Route: 048
  6. KYTRIL [Concomitant]
     Route: 048
  7. COMPAZINE [Concomitant]
     Route: 048
  8. ATROPINE W/DIPHENOXYLATE [Concomitant]
     Route: 048
  9. IMODIUM [Concomitant]
     Route: 048

REACTIONS (2)
  - DEHYDRATION [None]
  - NEUTROPENIA [None]
